FAERS Safety Report 25036970 (Version 2)
Quarter: 2025Q2

REPORT INFORMATION
  Report Type: Spontaneous
  Country: JP (occurrence: JP)
  Receive Date: 20250304
  Receipt Date: 20250613
  Transmission Date: 20250716
  Serious: Yes (Hospitalization, Other)
  Sender: PFIZER
  Company Number: JP-PFIZER INC-PV202500024529

PATIENT
  Age: 70 Year
  Sex: Female
  Weight: 55.6 kg

DRUGS (18)
  1. BESPONSA [Suspect]
     Active Substance: INOTUZUMAB OZOGAMICIN
     Indication: Acute lymphocytic leukaemia
     Dosage: 1.2 MG, DAILY
     Route: 041
     Dates: start: 20241018, end: 20241018
  2. BESPONSA [Suspect]
     Active Substance: INOTUZUMAB OZOGAMICIN
     Dosage: 0.79 MG, DAILY
     Route: 041
     Dates: start: 20241024, end: 20241024
  3. BESPONSA [Suspect]
     Active Substance: INOTUZUMAB OZOGAMICIN
     Dosage: 0.79 MG, DAILY
     Route: 041
     Dates: start: 20241031, end: 20241031
  4. BESPONSA [Suspect]
     Active Substance: INOTUZUMAB OZOGAMICIN
     Dosage: 0.78 MG, DAILY
     Route: 041
     Dates: start: 20241114, end: 20241114
  5. BESPONSA [Suspect]
     Active Substance: INOTUZUMAB OZOGAMICIN
     Dosage: 0.78 MG, DAILY
     Route: 041
     Dates: start: 20241121, end: 20241121
  6. BESPONSA [Suspect]
     Active Substance: INOTUZUMAB OZOGAMICIN
     Dosage: 0.78 MG, DAILY
     Route: 041
     Dates: start: 20241128, end: 20241128
  7. ACYCLOVIR [Concomitant]
     Active Substance: ACYCLOVIR
  8. BONALON [Concomitant]
     Active Substance: ALENDRONATE SODIUM
  9. AMLODIPINE [Concomitant]
     Active Substance: AMLODIPINE BESYLATE
  10. BILANOA OD [Concomitant]
  11. BUDESONIDE\FORMOTEROL [Concomitant]
     Active Substance: BUDESONIDE\FORMOTEROL
  12. FLUCONAZOLE [Concomitant]
     Active Substance: FLUCONAZOLE
  13. MAGNESIUM OXIDE [Concomitant]
     Active Substance: MAGNESIUM OXIDE
  14. LANSOPRAZOLE [Concomitant]
     Active Substance: LANSOPRAZOLE
  15. OLANZAPINE [Concomitant]
     Active Substance: OLANZAPINE
  16. PONATINIB [Concomitant]
     Active Substance: PONATINIB
  17. PRECOL [CAFFEINE;CHLORPHENAMINE MALEATE;DIHYDROCODEINE PHOSPHATE;GLYCY [Concomitant]
  18. TAMOXIFEN [Concomitant]
     Active Substance: TAMOXIFEN

REACTIONS (6)
  - Abdominal distension [Recovering/Resolving]
  - Diarrhoea [Recovering/Resolving]
  - Hepatic function abnormal [Recovering/Resolving]
  - Gastrointestinal infection [Recovering/Resolving]
  - Decreased appetite [Recovering/Resolving]
  - Venoocclusive liver disease [Recovering/Resolving]

NARRATIVE: CASE EVENT DATE: 20241212
